FAERS Safety Report 5231766-9 (Version None)
Quarter: 2007Q1

REPORT INFORMATION
  Report Type: 
  Country: None (occurrence: None)
  Receive Date: 20070206
  Receipt Date: 20070124
  Transmission Date: 20070707
  Serious: Yes (Death, Hospitalization)
  Sender: FDA-Public Use
  Company Number: BR-PFIZER INC-2007005240

PATIENT
  Age: 36 Year
  Sex: Female

DRUGS (5)
  1. SILDENAFIL (PAH) [Suspect]
     Indication: PULMONARY HYPERTENSION
     Route: 048
     Dates: start: 20060201, end: 20070113
  2. SPIRONOLACTONE [Concomitant]
     Route: 065
  3. FUROSEMIDE [Concomitant]
     Route: 065
  4. DIGOXIN [Concomitant]
     Route: 065
  5. CAPTOPRIL [Concomitant]
     Route: 065

REACTIONS (6)
  - CARDIAC FAILURE [None]
  - CARDIOGENIC SHOCK [None]
  - FATIGUE [None]
  - KIDNEY INFECTION [None]
  - PULMONARY HYPERTENSION [None]
  - RESPIRATORY TRACT INFECTION [None]
